FAERS Safety Report 24885049 (Version 1)
Quarter: 2025Q1

REPORT INFORMATION
  Report Type: Spontaneous
  Country: PL (occurrence: PL)
  Receive Date: 20250124
  Receipt Date: 20250124
  Transmission Date: 20250408
  Serious: Yes (Death)
  Sender: PFIZER
  Company Number: PL-PFIZER INC-202500014996

PATIENT
  Age: 75 Year
  Sex: Female

DRUGS (1)
  1. IBRANCE [Suspect]
     Active Substance: PALBOCICLIB
     Dates: start: 202410, end: 202501

REACTIONS (2)
  - C-reactive protein increased [Fatal]
  - Sepsis [Fatal]

NARRATIVE: CASE EVENT DATE: 20250101
